FAERS Safety Report 13449529 (Version 3)
Quarter: 2017Q2

REPORT INFORMATION
  Report Type: Report from Study
  Country: None (occurrence: KR)
  Receive Date: 20170417
  Receipt Date: 20170609
  Transmission Date: 20170830
  Serious: Yes (Hospitalization)
  Sender: FDA-Public Use
  Company Number: KR-ABBVIE-17P-090-1935729-00

PATIENT
  Age: 73 Year
  Sex: Male
  Weight: 64.4 kg

DRUGS (54)
  1. DUODOPA [Suspect]
     Active Substance: CARBIDOPA\LEVODOPA
     Indication: PARKINSON^S DISEASE
     Dosage: MD 12, CD 5.6, ED 2.5
     Route: 050
     Dates: start: 20150209, end: 20160201
  2. TRAST PATCH [Concomitant]
     Indication: SPINAL COLUMN STENOSIS
     Route: 062
     Dates: start: 20170315, end: 20170316
  3. PECETA [Concomitant]
     Indication: PYREXIA
     Route: 041
     Dates: start: 20170406, end: 20170406
  4. LINBACTAM [Concomitant]
     Indication: PYREXIA
     Route: 041
     Dates: start: 20170408, end: 20170411
  5. DEXTROSE 5% NA K2 [Concomitant]
     Indication: ELECTROLYTE SUBSTITUTION THERAPY
     Route: 041
     Dates: start: 20170408, end: 20170409
  6. NICARDIPINE INJ [Concomitant]
     Indication: HYPERTENSION
     Route: 040
     Dates: start: 20170408, end: 20170408
  7. TRIAXONE [Concomitant]
     Indication: PYREXIA
     Route: 040
     Dates: start: 20170406, end: 20170407
  8. COZAAR PLUS F 100/25MG [Concomitant]
     Indication: HYPERTENSION
     Route: 048
     Dates: start: 20170103, end: 20170311
  9. PK-MERZ [Concomitant]
     Active Substance: AMANTADINE
     Indication: PARKINSON^S DISEASE
     Route: 041
     Dates: start: 20170311, end: 20170316
  10. NEUPRO [Concomitant]
     Active Substance: ROTIGOTINE
     Dosage: 2 EA
     Route: 062
     Dates: start: 20170406, end: 20170408
  11. LASIX [Concomitant]
     Active Substance: FUROSEMIDE
     Indication: PLEURAL EFFUSION
     Route: 040
     Dates: start: 20170316, end: 20170316
  12. DEXTROSE 5% + NA K2 [Concomitant]
     Indication: FLUID REPLACEMENT
     Route: 041
     Dates: start: 20170316, end: 20170316
  13. HERBEN SR [Concomitant]
     Indication: HYPERTENSION
     Route: 048
     Dates: start: 20170409
  14. OMED [Concomitant]
     Indication: PROPHYLAXIS
     Route: 048
     Dates: start: 20160125, end: 20160307
  15. HERBEN SR [Concomitant]
     Route: 048
     Dates: start: 20170317, end: 20170405
  16. LYRICA [Concomitant]
     Active Substance: PREGABALIN
     Indication: LUMBAR RADICULOPATHY
     Route: 048
     Dates: start: 20150930, end: 20170311
  17. CELEBREX [Concomitant]
     Active Substance: CELECOXIB
     Indication: SPINAL COLUMN STENOSIS
     Route: 048
     Dates: start: 20151125, end: 20170311
  18. BEECOM [Concomitant]
     Indication: VITAMIN SUPPLEMENTATION
     Route: 048
     Dates: start: 20160215, end: 20170311
  19. PERDIPINE 10MG INJ [Concomitant]
     Dosage: CONTINUOUSLY
     Route: 041
     Dates: start: 20170406, end: 20170406
  20. LEVOFLOXACIN. [Concomitant]
     Active Substance: LEVOFLOXACIN
     Indication: PYREXIA
     Route: 041
     Dates: start: 20170408, end: 20170411
  21. DUODOPA [Suspect]
     Active Substance: CARBIDOPA\LEVODOPA
     Dosage: MD 12, CD 4.7, ED 2.5
     Route: 050
     Dates: start: 20160229, end: 20160328
  22. DUODOPA [Suspect]
     Active Substance: CARBIDOPA\LEVODOPA
     Dosage: MD 12, CD 4.1, ED 2.5
     Route: 050
     Dates: start: 20160328, end: 20160429
  23. SINEMET [Suspect]
     Active Substance: CARBIDOPA\LEVODOPA
     Route: 048
     Dates: start: 20161114, end: 20161226
  24. PK-MERZ [Concomitant]
     Active Substance: AMANTADINE
     Route: 041
     Dates: start: 20170406, end: 20170408
  25. TRANEXAMIC ACID INJ [Concomitant]
     Indication: HAEMOPTYSIS
     Route: 040
     Dates: start: 20170408, end: 20170413
  26. AMBRECT [Concomitant]
     Indication: HAEMOPTYSIS
     Route: 048
     Dates: start: 20170411
  27. CODEIN [Concomitant]
     Active Substance: CODEINE
     Indication: HAEMOPTYSIS
     Route: 048
     Dates: start: 20170409, end: 20170410
  28. RAMNOS [Concomitant]
     Indication: DIARRHOEA
     Route: 048
     Dates: start: 20170413
  29. OMED [Concomitant]
     Route: 048
     Dates: start: 20170413, end: 20170428
  30. HERBEN SR [Concomitant]
     Indication: PALPITATIONS
     Route: 048
     Dates: start: 20160901, end: 20170311
  31. PERDIPINE 10MG INJ [Concomitant]
     Dosage: CONTINUOUSLY
     Route: 041
     Dates: start: 20170311, end: 20170318
  32. NEUPRO [Concomitant]
     Active Substance: ROTIGOTINE
     Indication: PARKINSON^S DISEASE
     Route: 062
     Dates: start: 20170311, end: 20170316
  33. DICHLODIDE [Concomitant]
     Indication: HYPERTENSION
     Route: 048
     Dates: start: 20170317, end: 20170405
  34. DUODOPA [Suspect]
     Active Substance: CARBIDOPA\LEVODOPA
     Dosage: MD 12, CD 5.4, ED 2.5
     Route: 050
     Dates: start: 20160201, end: 20160229
  35. DUODOPA [Suspect]
     Active Substance: CARBIDOPA\LEVODOPA
     Dosage: MD 12, CD 4.4, ED 2.5
     Route: 050
     Dates: start: 20170116
  36. STILNOX [Concomitant]
     Active Substance: ZOLPIDEM TARTRATE
     Route: 048
     Dates: start: 20170410, end: 20170410
  37. WINUF [Concomitant]
     Indication: PARENTERAL NUTRITION
     Route: 041
     Dates: start: 20170312, end: 20170320
  38. OMED [Concomitant]
     Indication: GASTRIC ULCER
     Route: 048
     Dates: start: 20150706, end: 20151125
  39. OMED [Concomitant]
     Route: 048
     Dates: start: 20160608, end: 20170311
  40. DUODOPA [Suspect]
     Active Substance: CARBIDOPA\LEVODOPA
     Dosage: MD 12, CD 4.0, ED 2.5
     Route: 050
     Dates: start: 20160429, end: 20160523
  41. SINEMET [Suspect]
     Active Substance: CARBIDOPA\LEVODOPA
     Indication: PARKINSON^S DISEASE
     Route: 048
     Dates: start: 20150210, end: 20161114
  42. HERBEN SR [Concomitant]
     Indication: AORTIC VALVE INCOMPETENCE
     Route: 048
     Dates: start: 20131219, end: 20150618
  43. PERDIPINE 10MG INJ [Concomitant]
     Indication: HYPERTENSION
     Route: 040
     Dates: start: 20170311, end: 20170311
  44. DEXTROSE 5% [Concomitant]
     Active Substance: DEXTROSE
     Indication: PYREXIA
     Route: 041
     Dates: start: 20170408, end: 20170411
  45. WINUF INJ [Concomitant]
     Indication: NUTRITIONAL SUPPLEMENTATION
     Route: 041
     Dates: start: 20170408, end: 20170409
  46. COZZAR PLUS F 100/25MG [Concomitant]
     Indication: HYPERTENSION
     Route: 048
     Dates: start: 20170409
  47. SMECTA SUSP. [Concomitant]
     Indication: DIARRHOEA
     Dates: start: 20170413, end: 20170428
  48. DUODOPA [Suspect]
     Active Substance: CARBIDOPA\LEVODOPA
     Dosage: MD 12, CD 4.1, ED 2.5
     Route: 050
     Dates: start: 20160523, end: 20170116
  49. SINEMET [Suspect]
     Active Substance: CARBIDOPA\LEVODOPA
     Route: 048
     Dates: start: 20161226
  50. LOSARTAN. [Concomitant]
     Active Substance: LOSARTAN
     Indication: HYPERTENSION
     Route: 048
     Dates: start: 20170317, end: 20170405
  51. LYRICA [Concomitant]
     Active Substance: PREGABALIN
     Route: 048
     Dates: start: 20170412
  52. STILNOX [Concomitant]
     Active Substance: ZOLPIDEM TARTRATE
     Indication: INSOMNIA
     Route: 048
     Dates: start: 20151012, end: 20170311
  53. CELEBREX [Concomitant]
     Active Substance: CELECOXIB
     Route: 048
     Dates: start: 20170412
  54. HARNAL 0.2MG DISPERSIBLE [Concomitant]
     Indication: SKIN IRRITATION
     Route: 048
     Dates: start: 20170321

REACTIONS (1)
  - Ileus [Recovered/Resolved]

NARRATIVE: CASE EVENT DATE: 20170405
